FAERS Safety Report 8272924-9 (Version None)
Quarter: 2012Q2

REPORT INFORMATION
  Report Type: 
  Country: None (occurrence: None)
  Receive Date: 20120406
  Receipt Date: 20120406
  Transmission Date: 20120825
  Serious: Yes (Hospitalization, Other)
  Sender: FDA-Public Use
  Company Number: None

PATIENT
  Sex: Male
  Weight: 99.7913 kg

DRUGS (2)
  1. BUPROPION HCL [Suspect]
     Indication: DEPENDENCE
     Dosage: 450 M.G. DAILY A.M.
  2. BUPROPION HCL [Suspect]
     Indication: DEPRESSION
     Dosage: 450 M.G. DAILY A.M.

REACTIONS (2)
  - PRODUCT SUBSTITUTION ISSUE [None]
  - UNEVALUABLE EVENT [None]
